FAERS Safety Report 16687792 (Version 1)
Quarter: 2019Q3

REPORT INFORMATION
  Report Type: Spontaneous
  Country: US (occurrence: US)
  Receive Date: 20190809
  Receipt Date: 20190809
  Transmission Date: 20191004
  Serious: No
  Sender: FDA-Public Use
  Company Number: US-PFIZER INC-2019341011

PATIENT

DRUGS (5)
  1. MELOXICAM. [Suspect]
     Active Substance: MELOXICAM
     Dosage: UNK
  2. CLONIDINE. [Suspect]
     Active Substance: CLONIDINE
     Dosage: UNK
  3. VENLAFAXINE HCL [Suspect]
     Active Substance: VENLAFAXINE HYDROCHLORIDE
     Dosage: UNK
  4. MACROBID [CLARITHROMYCIN] [Suspect]
     Active Substance: CLARITHROMYCIN
     Dosage: UNK
  5. CYMBALTA [Suspect]
     Active Substance: DULOXETINE HYDROCHLORIDE
     Dosage: UNK

REACTIONS (1)
  - Drug hypersensitivity [Unknown]
